FAERS Safety Report 8882212 (Version 1)
Quarter: 2012Q4

REPORT INFORMATION
  Report Type: 
  Country: VE (occurrence: VE)
  Receive Date: 20121102
  Receipt Date: 20121102
  Transmission Date: 20130627
  Serious: Yes (Death)
  Sender: FDA-Public Use
  Company Number: VE-ROCHE-1151986

PATIENT
  Sex: Female

DRUGS (4)
  1. XOLAIR [Suspect]
     Indication: ASTHMA
     Route: 065
     Dates: start: 20120412, end: 201206
  2. NIFEDIPINE [Concomitant]
  3. SALBUTAMOL [Concomitant]
  4. BERODUAL [Concomitant]

REACTIONS (2)
  - Respiratory arrest [Fatal]
  - Asthmatic crisis [Fatal]
